FAERS Safety Report 6087220-8 (Version None)
Quarter: 2009Q1

REPORT INFORMATION
  Report Type: 
  Country: None (occurrence: None)
  Receive Date: 20090223
  Receipt Date: 20090219
  Transmission Date: 20090719
  Serious: Yes (Other)
  Sender: FDA-Public Use
  Company Number: US-ASTRAZENECA-2009UW04739

PATIENT
  Age: 70 Year
  Sex: Female
  Weight: 67.1 kg

DRUGS (4)
  1. ARIMIDEX [Suspect]
     Indication: BREAST CANCER
     Route: 048
     Dates: start: 20070401
  2. MULTI-VITAMIN [Concomitant]
     Indication: SUPPLEMENTATION THERAPY
  3. CALCIUM WITH VITAMIN D [Concomitant]
     Indication: OSTEOPENIA
  4. ASPIRIN [Concomitant]

REACTIONS (3)
  - CONSTIPATION [None]
  - DEPRESSION [None]
  - TENOSYNOVITIS [None]
